FAERS Safety Report 7227610-0 (Version None)
Quarter: 2011Q1

REPORT INFORMATION
  Report Type: 
  Country: None (occurrence: None)
  Receive Date: 20110114
  Receipt Date: 20110106
  Transmission Date: 20110831
  Serious: Yes (Hospitalization, Other)
  Sender: FDA-Public Use
  Company Number: US-JNJFOC-20100706029

PATIENT
  Sex: Female

DRUGS (2)
  1. LEVAQUIN [Suspect]
     Indication: ILL-DEFINED DISORDER
     Route: 048
  2. LEVAQUIN [Suspect]
     Indication: LUNG INFECTION
     Route: 042

REACTIONS (7)
  - BURSITIS [None]
  - TENOSYNOVITIS [None]
  - ROTATOR CUFF SYNDROME [None]
  - TENDON DISORDER [None]
  - JOINT INJURY [None]
  - LIGAMENT RUPTURE [None]
  - MENISCUS LESION [None]
